FAERS Safety Report 18886538 (Version 2)
Quarter: 2021Q2

REPORT INFORMATION
  Report Type: Spontaneous
  Country: CA (occurrence: CA)
  Receive Date: 20210212
  Receipt Date: 20210531
  Transmission Date: 20210717
  Serious: Yes (Other)
  Sender: FDA-Public Use
  Company Number: CA-SA-2021SA029452

PATIENT
  Age: 52 Year
  Sex: Male

DRUGS (24)
  1. AMLODIPINE [Suspect]
     Active Substance: AMLODIPINE BESYLATE
     Indication: SECONDARY PROGRESSIVE MULTIPLE SCLEROSIS
     Dosage: 10 MG, QD
     Route: 048
  2. INTERFERON BETA?1A [Suspect]
     Active Substance: INTERFERON BETA-1A
  3. ATIVAN [Concomitant]
     Active Substance: LORAZEPAM
  4. VITAMIN B COMPLEX [CYANOCOBALAMIN] [Concomitant]
  5. CALCIUM [Concomitant]
     Active Substance: CALCIUM
  6. PRAMIPEXOLE HYDROCHLORIDE [Suspect]
     Active Substance: PRAMIPEXOLE DIHYDROCHLORIDE
     Indication: SECONDARY PROGRESSIVE MULTIPLE SCLEROSIS
     Dosage: 0.25 MG, QD
     Route: 048
  7. RABEPRAZOLE SODIUM. [Suspect]
     Active Substance: RABEPRAZOLE SODIUM
     Indication: SECONDARY PROGRESSIVE MULTIPLE SCLEROSIS
     Dosage: 20 MG, QD
     Route: 048
  8. TECFIDERA [Suspect]
     Active Substance: DIMETHYL FUMARATE
     Indication: PRODUCT USED FOR UNKNOWN INDICATION
  9. DIMETHYL FUMARATE [Suspect]
     Active Substance: DIMETHYL FUMARATE
     Indication: PRODUCT USED FOR UNKNOWN INDICATION
     Dosage: UNK
  10. FLOMAX [Suspect]
     Active Substance: TAMSULOSIN HYDROCHLORIDE
     Indication: SECONDARY PROGRESSIVE MULTIPLE SCLEROSIS
     Route: 048
  11. BACLOFEN. [Suspect]
     Active Substance: BACLOFEN
     Dosage: 10 MG, QD
     Route: 048
  12. BISOPROLOL FUMARATE. [Suspect]
     Active Substance: BISOPROLOL FUMARATE
     Indication: SECONDARY PROGRESSIVE MULTIPLE SCLEROSIS
     Route: 048
  13. GABAPENTIN. [Suspect]
     Active Substance: GABAPENTIN
     Indication: PRODUCT USED FOR UNKNOWN INDICATION
     Dosage: 100 MG, QD
  14. LORAZEPAM. [Suspect]
     Active Substance: LORAZEPAM
     Indication: PRODUCT USED FOR UNKNOWN INDICATION
     Route: 048
  15. ALLOPURINOL;BENZBROMARONE [Concomitant]
  16. ACETYLSALICYLIC ACID;CODEINE [Concomitant]
  17. BACLOFEN. [Suspect]
     Active Substance: BACLOFEN
     Indication: PRODUCT USED FOR UNKNOWN INDICATION
     Dosage: 30 MG, Q8H
     Route: 048
  18. DOXEPIN HYDROCHLORIDE. [Suspect]
     Active Substance: DOXEPIN HYDROCHLORIDE
     Indication: PRODUCT USED FOR UNKNOWN INDICATION
     Dosage: 6 MG, QD
  19. RABEPRAZOLE [Concomitant]
     Active Substance: RABEPRAZOLE
  20. REBIF [Suspect]
     Active Substance: INTERFERON BETA-1A
     Indication: PRODUCT USED FOR UNKNOWN INDICATION
  21. ROSUVASTATIN CALCIUM. [Suspect]
     Active Substance: ROSUVASTATIN CALCIUM
     Dosage: 5 MG, QD
     Route: 048
  22. ASPIRIN [ACETYLSALICYLIC ACID] [Concomitant]
     Active Substance: ASPIRIN
  23. VITAMIN D3 [Concomitant]
     Active Substance: CHOLECALCIFEROL
  24. FAMPYRA [Concomitant]
     Active Substance: DALFAMPRIDINE

REACTIONS (25)
  - Erectile dysfunction [Unknown]
  - Hypoaesthesia [Unknown]
  - Muscle spasticity [Unknown]
  - Pain [Unknown]
  - Central nervous system lesion [Unknown]
  - Ataxia [Unknown]
  - Balance disorder [Unknown]
  - Fall [Unknown]
  - Nocturia [Unknown]
  - Needle fatigue [Unknown]
  - Insomnia [Unknown]
  - Monoparesis [Unknown]
  - Micturition urgency [Unknown]
  - Product use in unapproved indication [Unknown]
  - Anxiety [Unknown]
  - Dysarthria [Unknown]
  - Dizziness [Unknown]
  - Movement disorder [Unknown]
  - Pollakiuria [Unknown]
  - Relapsing-remitting multiple sclerosis [Unknown]
  - Bradycardia [Unknown]
  - Gait spastic [Unknown]
  - Memory impairment [Unknown]
  - Multiple sclerosis relapse [Unknown]
  - Hypertonic bladder [Unknown]
